FAERS Safety Report 9386640 (Version 2)
Quarter: 2013Q3

REPORT INFORMATION
  Report Type: Spontaneous
  Country: JP (occurrence: JP)
  Receive Date: 20130708
  Receipt Date: 20130807
  Transmission Date: 20140515
  Serious: Yes (Hospitalization, Other)
  Sender: FDA-Public Use
  Company Number: PHHY2013JP071253

PATIENT
  Age: 18 Year
  Sex: Male

DRUGS (16)
  1. TEGRETOL [Suspect]
     Indication: AGITATION
     Dosage: 300 MG, DAILY
     Route: 048
     Dates: start: 20130621
  2. TEGRETOL [Suspect]
     Dosage: 500 MG, DAILY
     Route: 048
     Dates: start: 20130624
  3. TEGRETOL [Suspect]
     Dosage: 600 MG, DAILY
     Route: 048
     Dates: start: 20130626
  4. TEGRETOL [Suspect]
     Dosage: 500 MG, DAILY
     Route: 048
     Dates: start: 20130628
  5. TEGRETOL [Suspect]
     Dosage: 300 MG, DAILY
     Route: 048
     Dates: start: 20130629
  6. TEGRETOL [Suspect]
     Dosage: 500 MG, DAILY
     Route: 048
     Dates: start: 20130701
  7. TEGRETOL [Suspect]
     Dosage: 400 MG, DAILY
     Route: 048
     Dates: start: 20130702
  8. TEGRETOL [Suspect]
     Dosage: 300 MG, DAILY
     Route: 048
     Dates: start: 20130703
  9. TEGRETOL [Suspect]
     Dosage: 200 MG, DAILY
     Route: 048
     Dates: start: 20130705
  10. LUNESTA [Concomitant]
     Dosage: 1 MG, UNK
     Route: 048
     Dates: start: 2013
  11. MAJORPIN [Concomitant]
     Dosage: 300 MG, UNK
     Route: 048
     Dates: end: 20130630
  12. MAGNESIUM OXIDE [Concomitant]
     Dosage: 3 G, UNK
     Route: 048
  13. AKIRIDEN [Concomitant]
     Dosage: 2 MG, UNK
     Route: 048
     Dates: end: 20130702
  14. LINTON [Concomitant]
     Dosage: 5 DF, TID
     Route: 048
     Dates: start: 20130624
  15. LINTON [Concomitant]
     Dosage: 4 DF, TID
     Route: 048
     Dates: start: 20130626
  16. LINTON [Concomitant]
     Dosage: 4 DF, QID
     Route: 048
     Dates: start: 20130628

REACTIONS (2)
  - Convulsion [Unknown]
  - Drug level increased [Unknown]
